FAERS Safety Report 14258301 (Version 1)
Quarter: 2017Q4

REPORT INFORMATION
  Report Type: Report from Study
  Country: US (occurrence: US)
  Receive Date: 20171207
  Receipt Date: 20171207
  Transmission Date: 20180321
  Serious: Yes (Hospitalization)
  Sender: FDA-Public Use
  Company Number: US-BRISTOL-MYERS SQUIBB COMPANY-BMS-2017-108878

PATIENT
  Sex: Female

DRUGS (2)
  1. NKTR-214 [Suspect]
     Active Substance: INVESTIGATIONAL PRODUCT
     Indication: SARCOMA
     Dosage: UNK
     Route: 065
     Dates: start: 20171031, end: 20171121
  2. NIVOLUMAB [Suspect]
     Active Substance: NIVOLUMAB
     Indication: SARCOMA
     Dosage: UNK
     Route: 065
     Dates: start: 20171031, end: 20171121

REACTIONS (2)
  - Dehydration [Recovered/Resolved]
  - Vomiting [Recovered/Resolved]

NARRATIVE: CASE EVENT DATE: 20171123
